FAERS Safety Report 7077292-6 (Version None)
Quarter: 2010Q4

REPORT INFORMATION
  Report Type: 
  Country: None (occurrence: None)
  Receive Date: 20101029
  Receipt Date: 20101029
  Transmission Date: 20110411
  Serious: No
  Sender: FDA-Public Use
  Company Number: None

PATIENT
  Age: 32 Year
  Sex: Female
  Weight: 74.8435 kg

DRUGS (13)
  1. PROCRIT [Suspect]
     Indication: ANAEMIA
     Dosage: 10,000 UNITS EVERY OTHER DAY SUBCUTANEOUS
     Route: 058
     Dates: start: 20100914
  2. PROCRIT [Suspect]
     Indication: HAEMOGLOBIN INCREASED
     Dosage: 10,000 UNITS EVERY OTHER DAY SUBCUTANEOUS
     Route: 058
     Dates: start: 20100914
  3. PROCRIT [Suspect]
     Indication: ANAEMIA
     Dosage: 10,000 UNITS EVERY OTHER DAY SUBCUTANEOUS
     Route: 058
     Dates: start: 20100916
  4. PROCRIT [Suspect]
     Indication: HAEMOGLOBIN INCREASED
     Dosage: 10,000 UNITS EVERY OTHER DAY SUBCUTANEOUS
     Route: 058
     Dates: start: 20100916
  5. PROCRIT [Suspect]
     Indication: ANAEMIA
     Dosage: 10,000 UNITS EVERY OTHER DAY SUBCUTANEOUS
     Route: 058
     Dates: start: 20100918
  6. PROCRIT [Suspect]
     Indication: HAEMOGLOBIN INCREASED
     Dosage: 10,000 UNITS EVERY OTHER DAY SUBCUTANEOUS
     Route: 058
     Dates: start: 20100918
  7. PROCRIT [Suspect]
     Indication: ANAEMIA
     Dosage: 10,000 UNITS EVERY OTHER DAY SUBCUTANEOUS
     Route: 058
     Dates: start: 20100920
  8. PROCRIT [Suspect]
     Indication: HAEMOGLOBIN INCREASED
     Dosage: 10,000 UNITS EVERY OTHER DAY SUBCUTANEOUS
     Route: 058
     Dates: start: 20100920
  9. PROCRIT [Suspect]
     Indication: ANAEMIA
     Dosage: 10,000 UNITS EVERY OTHER DAY SUBCUTANEOUS
     Route: 058
     Dates: start: 20100922
  10. PROCRIT [Suspect]
     Indication: HAEMOGLOBIN INCREASED
     Dosage: 10,000 UNITS EVERY OTHER DAY SUBCUTANEOUS
     Route: 058
     Dates: start: 20100922
  11. PROCRIT [Suspect]
     Indication: ANAEMIA
     Dosage: 10,000 UNITS EVERY OTHER DAY SUBCUTANEOUS
     Route: 058
     Dates: start: 20100924
  12. PROCRIT [Suspect]
     Indication: HAEMOGLOBIN INCREASED
     Dosage: 10,000 UNITS EVERY OTHER DAY SUBCUTANEOUS
     Route: 058
     Dates: start: 20100924
  13. PROCRIT [Suspect]

REACTIONS (3)
  - INJECTION SITE HAEMORRHAGE [None]
  - INJECTION SITE PAIN [None]
  - PRODUCT QUALITY ISSUE [None]
